FAERS Safety Report 4888675-4 (Version None)
Quarter: 2005Q4

REPORT INFORMATION
  Report Type: 
  Country: None (occurrence: None)
  Receive Date: 20051216
  Receipt Date: 20050829
  Transmission Date: 20060501
  Serious: No
  Sender: FDA-Public Use
  Company Number: USA0508106669

PATIENT
  Age: 63 Year
  Sex: Male

DRUGS (6)
  1. CIALIS [Suspect]
     Indication: ERECTILE DYSFUNCTION
     Dosage: 10 MG
     Dates: start: 20050821
  2. CELEBREX [Concomitant]
  3. LAMICTAL [Concomitant]
  4. PRIMIDONE [Concomitant]
  5. CHODROITIN SODIUM SULFATE W/GLUCOSAMINE HCL [Concomitant]
  6. OSTEO BI-FLEX [Concomitant]

REACTIONS (1)
  - DRUG INEFFECTIVE [None]
